FAERS Safety Report 4987756-4 (Version None)
Quarter: 2006Q2

REPORT INFORMATION
  Report Type: 
  Country: None (occurrence: None)
  Receive Date: 20060424
  Receipt Date: 20060410
  Transmission Date: 20061013
  Serious: Yes (Other)
  Sender: FDA-Public Use
  Company Number: GB200604001642

PATIENT
  Age: 23 Year
  Sex: Female

DRUGS (1)
  1. XIGRIS [Suspect]
     Dosage: 24 UG/KG/HR,

REACTIONS (4)
  - ACTIVATED PARTIAL THROMBOPLASTIN TIME PROLONGED [None]
  - PUNCTURE SITE HAEMORRHAGE [None]
  - SURGERY [None]
  - THROMBOCYTOPENIA [None]
